FAERS Safety Report 4941206-2 (Version None)
Quarter: 2006Q1

REPORT INFORMATION
  Report Type: 
  Country: None (occurrence: None)
  Receive Date: 20060309
  Receipt Date: 20060309
  Transmission Date: 20060701
  Serious: No
  Sender: FDA-Public Use
  Company Number: None

PATIENT

DRUGS (1)
  1. CHLORAL HYDRATE SYRUP 500MG/ 5 ML PHARMACEUTICAL ASSOCIATES INC. [Suspect]
     Indication: MENTAL DISORDER
     Dosage: 500MG/ 5 ML  PO
     Route: 048

REACTIONS (1)
  - MEDICATION ERROR [None]
